FAERS Safety Report 7703129-5 (Version None)
Quarter: 2011Q3

REPORT INFORMATION
  Report Type: 
  Country: None (occurrence: None)
  Receive Date: 20110817
  Receipt Date: 20110809
  Transmission Date: 20111222
  Serious: Yes (Hospitalization)
  Sender: FDA-Public Use
  Company Number: 2011MA011636

PATIENT

DRUGS (7)
  1. XANAX(CON.) [Concomitant]
  2. ATENOLOL(CON.) [Concomitant]
  3. VALSARTAN(CON.) [Concomitant]
  4. AMLODIPINE(CON.) [Concomitant]
  5. DIGOXIN [Suspect]
     Indication: ATRIAL FIBRILLATION
     Dosage: .25 MG; QD; PO
     Route: 048
     Dates: start: 20040713
  6. LEVOXYL(CON.) UNKNOWN [Concomitant]
  7. ASA(CON.) [Concomitant]

REACTIONS (25)
  - BLOOD ALBUMIN DECREASED [None]
  - HYPOTHYROIDISM [None]
  - ARTHRITIS [None]
  - HYPOPHAGIA [None]
  - MOBILITY DECREASED [None]
  - LIVER DISORDER [None]
  - SUPRAVENTRICULAR EXTRASYSTOLES [None]
  - VENTRICULAR EXTRASYSTOLES [None]
  - CORONARY ARTERY DISEASE [None]
  - URINARY TRACT INFECTION [None]
  - DIARRHOEA [None]
  - CARDIOACTIVE DRUG LEVEL DECREASED [None]
  - ATRIAL TACHYCARDIA [None]
  - PLEURAL EFFUSION [None]
  - TOXICITY TO VARIOUS AGENTS [None]
  - NAUSEA [None]
  - NEPHROPATHY [None]
  - MALNUTRITION [None]
  - LUNG INFECTION [None]
  - BRADYCARDIA [None]
  - CARDIAC FAILURE CONGESTIVE [None]
  - DECREASED APPETITE [None]
  - WHITE BLOOD CELL COUNT INCREASED [None]
  - TOE OPERATION [None]
  - INJURY [None]
